FAERS Safety Report 24867854 (Version 1)
Quarter: 2025Q1

REPORT INFORMATION
  Report Type: Report from Study
  Country: US (occurrence: US)
  Receive Date: 20250121
  Receipt Date: 20250121
  Transmission Date: 20250409
  Serious: Yes (Other)
  Sender: JAZZ
  Company Number: US-JAZZ-2022-US-027033

PATIENT
  Sex: Female

DRUGS (61)
  1. XYREM [Suspect]
     Active Substance: SODIUM OXYBATE
     Indication: Apnoea
     Dosage: 3.5 GRAM, BID
     Route: 048
  2. XYREM [Suspect]
     Active Substance: SODIUM OXYBATE
     Indication: Insomnia
  3. MOVANTIK [Suspect]
     Active Substance: NALOXEGOL OXALATE
     Indication: Product used for unknown indication
  4. NORCO [Concomitant]
     Active Substance: ACETAMINOPHEN\HYDROCODONE BITARTRATE
     Dates: start: 20130115
  5. HYDROCHLOROTHIAZIDE\TRIAMTERENE [Concomitant]
     Active Substance: HYDROCHLOROTHIAZIDE\TRIAMTERENE
     Dates: start: 20140321
  6. DILTIAZEM [Concomitant]
     Active Substance: DILTIAZEM
     Dosage: UNK UNK, QD
     Dates: start: 20140701
  7. ROPINIROLE [Concomitant]
     Active Substance: ROPINIROLE
  8. ROPINIROLE [Concomitant]
     Active Substance: ROPINIROLE
  9. MODAFINIL [Concomitant]
     Active Substance: MODAFINIL
  10. MODAFINIL [Concomitant]
     Active Substance: MODAFINIL
  11. SENOKOT [Concomitant]
     Active Substance: SENNOSIDES
  12. SENOKOT [Concomitant]
     Active Substance: SENNOSIDES
  13. SENOKOT [Concomitant]
     Active Substance: SENNOSIDES
  14. SENOKOT [Concomitant]
     Active Substance: SENNOSIDES
  15. ZOLEDRONIC ACID [Concomitant]
     Active Substance: ZOLEDRONIC ACID
  16. ZOLEDRONIC ACID [Concomitant]
     Active Substance: ZOLEDRONIC ACID
  17. ZOLEDRONIC ACID [Concomitant]
     Active Substance: ZOLEDRONIC ACID
  18. ZOLEDRONIC ACID [Concomitant]
     Active Substance: ZOLEDRONIC ACID
  19. DEPLIN [CALCIUM LEVOMEFOLATE] [Concomitant]
  20. DEPLIN [CALCIUM LEVOMEFOLATE] [Concomitant]
  21. DEPLIN [CALCIUM LEVOMEFOLATE] [Concomitant]
  22. DEPLIN [CALCIUM LEVOMEFOLATE] [Concomitant]
  23. DESYREL [Concomitant]
     Active Substance: TRAZODONE HYDROCHLORIDE
  24. DESYREL [Concomitant]
     Active Substance: TRAZODONE HYDROCHLORIDE
  25. DESYREL [Concomitant]
     Active Substance: TRAZODONE HYDROCHLORIDE
  26. DESYREL [Concomitant]
     Active Substance: TRAZODONE HYDROCHLORIDE
  27. DOCUSATE SODIUM [Concomitant]
     Active Substance: DOCUSATE SODIUM
     Route: 048
  28. DOCUSATE SODIUM [Concomitant]
     Active Substance: DOCUSATE SODIUM
     Route: 048
  29. OMEPRAZOLE [Concomitant]
     Active Substance: OMEPRAZOLE
     Route: 048
  30. OMEPRAZOLE [Concomitant]
     Active Substance: OMEPRAZOLE
     Route: 048
  31. OMEPRAZOLE [Concomitant]
     Active Substance: OMEPRAZOLE
     Route: 048
  32. OMEPRAZOLE [Concomitant]
     Active Substance: OMEPRAZOLE
     Route: 048
  33. VITAMINS [Concomitant]
     Active Substance: VITAMINS
  34. VITAMINS [Concomitant]
     Active Substance: VITAMINS
  35. SODIUM BICARBONATE [Concomitant]
     Active Substance: SODIUM BICARBONATE
  36. SODIUM BICARBONATE [Concomitant]
     Active Substance: SODIUM BICARBONATE
  37. SODIUM BICARBONATE [Concomitant]
     Active Substance: SODIUM BICARBONATE
  38. SODIUM BICARBONATE [Concomitant]
     Active Substance: SODIUM BICARBONATE
  39. POLYETHYLENE GLYCOL 3350 [Concomitant]
     Active Substance: POLYETHYLENE GLYCOL 3350
  40. POLYETHYLENE GLYCOL 3350 [Concomitant]
     Active Substance: POLYETHYLENE GLYCOL 3350
  41. SYNTHROID [Concomitant]
     Active Substance: LEVOTHYROXINE SODIUM
  42. SYNTHROID [Concomitant]
     Active Substance: LEVOTHYROXINE SODIUM
  43. LAMICTAL [Concomitant]
     Active Substance: LAMOTRIGINE
  44. LAMICTAL [Concomitant]
     Active Substance: LAMOTRIGINE
  45. CELEBREX [Concomitant]
     Active Substance: CELECOXIB
  46. CELEBREX [Concomitant]
     Active Substance: CELECOXIB
  47. PRISTIQ EXTENDED-RELEASE [Concomitant]
     Active Substance: DESVENLAFAXINE SUCCINATE
  48. PRISTIQ EXTENDED-RELEASE [Concomitant]
     Active Substance: DESVENLAFAXINE SUCCINATE
  49. VYVANSE [Concomitant]
     Active Substance: LISDEXAMFETAMINE DIMESYLATE
  50. VYVANSE [Concomitant]
     Active Substance: LISDEXAMFETAMINE DIMESYLATE
  51. L-METHYLFOLATE CALCIUM [Concomitant]
     Active Substance: LEVOMEFOLATE CALCIUM
  52. L-METHYLFOLATE CALCIUM [Concomitant]
     Active Substance: LEVOMEFOLATE CALCIUM
  53. MOBIC [Concomitant]
     Active Substance: MELOXICAM
  54. MOBIC [Concomitant]
     Active Substance: MELOXICAM
  55. NALOXEGOL OXALATE [Concomitant]
     Active Substance: NALOXEGOL OXALATE
  56. NALOXEGOL OXALATE [Concomitant]
     Active Substance: NALOXEGOL OXALATE
  57. MS CONTIN [Concomitant]
     Active Substance: MORPHINE SULFATE
  58. MS CONTIN [Concomitant]
     Active Substance: MORPHINE SULFATE
  59. SYMPROIC [Concomitant]
     Active Substance: NALDEMEDINE TOSYLATE
  60. SYMPROIC [Concomitant]
     Active Substance: NALDEMEDINE TOSYLATE
  61. ACETAMINOPHEN\HYDROCODONE [Concomitant]
     Active Substance: ACETAMINOPHEN\HYDROCODONE
     Indication: Product used for unknown indication
     Dates: start: 20230115

REACTIONS (8)
  - Dental operation [Unknown]
  - Nausea [Recovered/Resolved]
  - Pre-existing condition improved [Recovering/Resolving]
  - Decreased appetite [Unknown]
  - Rash [Unknown]
  - Depression [Unknown]
  - Snoring [Unknown]
  - Off label use [Unknown]
